FAERS Safety Report 23444303 (Version 5)
Quarter: 2024Q1

REPORT INFORMATION
  Report Type: Spontaneous
  Country: PT (occurrence: PT)
  Receive Date: 20240125
  Receipt Date: 20240306
  Transmission Date: 20240409
  Serious: Yes (Other)
  Sender: FDA-Public Use
  Company Number: PT-AUROBINDO-AUR-APL-2024-002013

PATIENT
  Age: 55 Year
  Sex: Female

DRUGS (9)
  1. RIBOCICLIB [Suspect]
     Active Substance: RIBOCICLIB
     Indication: Metastases to pelvis
     Dosage: UNK (INITIAL DOSE)
     Route: 065
     Dates: start: 202011
  2. RIBOCICLIB [Suspect]
     Active Substance: RIBOCICLIB
     Indication: Breast cancer metastatic
     Dosage: 400 MG, QD
     Route: 065
     Dates: start: 202011
  3. RIBOCICLIB [Suspect]
     Active Substance: RIBOCICLIB
     Dosage: 400 MG
     Route: 065
     Dates: end: 202011
  4. ZOLEDRONIC ACID [Interacting]
     Active Substance: ZOLEDRONIC ACID
     Indication: Metastases to pelvis
     Dosage: UNK
     Route: 065
     Dates: start: 202011
  5. ZOLEDRONIC ACID [Interacting]
     Active Substance: ZOLEDRONIC ACID
     Indication: Breast cancer metastatic
     Dosage: UNK
     Route: 065
     Dates: end: 202011
  6. LETROZOLE [Suspect]
     Active Substance: LETROZOLE
     Indication: Metastases to pelvis
     Dosage: UNK
     Route: 065
     Dates: end: 202011
  7. LETROZOLE [Suspect]
     Active Substance: LETROZOLE
     Indication: Breast cancer metastatic
  8. TAMOXIFEN CITRATE [Concomitant]
     Active Substance: TAMOXIFEN CITRATE
     Indication: Product used for unknown indication
     Dosage: UNK
     Route: 065
  9. FULVESTRANT [Concomitant]
     Active Substance: FULVESTRANT
     Indication: Product used for unknown indication
     Dosage: UNK
     Route: 065

REACTIONS (4)
  - Hepatotoxicity [Unknown]
  - Drug-induced liver injury [Unknown]
  - Vitiligo [Unknown]
  - Off label use [Unknown]

NARRATIVE: CASE EVENT DATE: 20201101
